FAERS Safety Report 16784122 (Version 1)
Quarter: 2019Q3

REPORT INFORMATION
  Report Type: Other
  Country: IT (occurrence: IT)
  Receive Date: 20190909
  Receipt Date: 20190909
  Transmission Date: 20191005
  Serious: Yes (Other)
  Sender: FDA-Public Use
  Company Number: IT-CELLTRION INC.-2019IT024344

PATIENT

DRUGS (2)
  1. RITUXIMAB (UNKNOWN) [Suspect]
     Active Substance: RITUXIMAB
     Dosage: 1 UNK, EVERY 15 DAYS THEN EVERY 6 MONTHS
     Route: 042
  2. RITUXIMAB (UNKNOWN) [Suspect]
     Active Substance: RITUXIMAB
     Indication: NEUROMYELITIS OPTICA SPECTRUM DISORDER
     Dosage: 4 UNK, WEEKLY
     Route: 042
     Dates: start: 201511

REACTIONS (8)
  - Off label use [Unknown]
  - Intentional product use issue [Unknown]
  - Pyrexia [Recovered/Resolved]
  - Pharyngeal paraesthesia [Recovered/Resolved]
  - Hypothermia [Recovered/Resolved]
  - Fatigue [Unknown]
  - Hypotension [Recovered/Resolved]
  - Thrombocytopenia [Recovered/Resolved]
